FAERS Safety Report 4381888-X (Version None)
Quarter: 2004Q2

REPORT INFORMATION
  Report Type: 
  Country: None (occurrence: None)
  Receive Date: 20040615
  Receipt Date: 20040603
  Transmission Date: 20050107
  Serious: Yes (Hospitalization)
  Sender: FDA-Public Use
  Company Number: 04P-009-0262748-00

PATIENT
  Age: 33 Year
  Sex: Male

DRUGS (2)
  1. VALPROATE SODIUM [Suspect]
     Indication: BIPOLAR DISORDER
     Dosage: 1500 MG, 1 IN 1 D, ORAL
     Route: 048
     Dates: start: 20040420, end: 20040502
  2. CARBAMAZEPINE [Concomitant]

REACTIONS (2)
  - DISORIENTATION [None]
  - PSYCHOTIC DISORDER DUE TO A GENERAL MEDICAL CONDITION [None]
